FAERS Safety Report 24738597 (Version 1)
Quarter: 2024Q4

REPORT INFORMATION
  Report Type: Report from Study
  Country: GB (occurrence: GB)
  Receive Date: 20241216
  Receipt Date: 20241216
  Transmission Date: 20250115
  Serious: Yes (Death)
  Sender: TEVA
  Company Number: GB-TEVA-VS-3274943

PATIENT
  Age: 22 Year
  Sex: Male

DRUGS (1)
  1. DIAZEPAM [Suspect]
     Active Substance: DIAZEPAM
     Indication: Product used for unknown indication
     Route: 065

REACTIONS (2)
  - Toxicity to various agents [Fatal]
  - Accidental poisoning [Fatal]
